FAERS Safety Report 4293618-0 (Version None)
Quarter: 2004Q1

REPORT INFORMATION
  Report Type: 
  Country: None (occurrence: None)
  Receive Date: 20040210
  Receipt Date: 20040130
  Transmission Date: 20041129
  Serious: Yes (Hospitalization)
  Sender: FDA-Public Use
  Company Number: 04P-056-0249093-00

PATIENT
  Age: 65 Year
  Sex: Male
  Weight: 95 kg

DRUGS (9)
  1. TRICOR [Suspect]
     Indication: HYPERCHOLESTEROLAEMIA
     Dosage: 200 MG, 1 IN 1 D, ORAL
     Route: 048
  2. ASPIRIN [Concomitant]
  3. NAFTAZONE [Concomitant]
  4. CAPOZIDE [Concomitant]
  5. BUFLOMEDIL [Concomitant]
  6. HYDROCHLORIDE [Concomitant]
  7. SERENOA REPENS [Concomitant]
  8. BUFLOMEDIL HYDROCHLORIDE [Concomitant]
  9. SERENOA REPENS [Concomitant]

REACTIONS (6)
  - INFECTION [None]
  - RASH ERYTHEMATOUS [None]
  - RASH PRURITIC [None]
  - SKIN ULCER [None]
  - URTICARIA [None]
  - VASCULAR PURPURA [None]
